FAERS Safety Report 24870037 (Version 1)
Quarter: 2025Q1

REPORT INFORMATION
  Report Type: Spontaneous
  Country: US (occurrence: US)
  Receive Date: 20250121
  Receipt Date: 20250121
  Transmission Date: 20250409
  Serious: No
  Sender: PFIZER
  Company Number: US-PFIZER INC-PV202500008304

PATIENT
  Age: 39 Year
  Sex: Female

DRUGS (2)
  1. LORBRENA [Suspect]
     Active Substance: LORLATINIB
     Indication: Non-small cell lung cancer metastatic
     Dosage: 75 MG, DAILY (3X 25MG)
     Dates: start: 20241215
  2. LORBRENA [Suspect]
     Active Substance: LORLATINIB
     Dosage: 100 MG (THREE CONSECUTIVE DAYS, FOLLOWED BY SKIPPING THE FOURTH DAY)
     Dates: start: 20250110

REACTIONS (8)
  - Arthralgia [Unknown]
  - Pain in extremity [Unknown]
  - Pain in extremity [Unknown]
  - Oedema [Unknown]
  - Back pain [Unknown]
  - Cognitive disorder [Unknown]
  - Dizziness [Unknown]
  - Off label use [Unknown]
